FAERS Safety Report 4553581-1 (Version None)
Quarter: 2004Q4

REPORT INFORMATION
  Report Type: 
  Country: None (occurrence: None)
  Receive Date: 20041227
  Receipt Date: 20041028
  Transmission Date: 20050328
  Serious: No
  Sender: FDA-Public Use
  Company Number: 04P-163-0278970-00

PATIENT
  Age: 70 Year
  Sex: Female
  Weight: 50.8029 kg

DRUGS (12)
  1. HUMIRA [Suspect]
     Indication: RHEUMATOID ARTHRITIS
     Dosage: 40 MG, 1 IN 2 WK, SUBCUTANEOUS
     Route: 058
     Dates: start: 20040901
  2. GABAPENTIN [Concomitant]
  3. TRAZODONE [Concomitant]
  4. ESTROGENS CONJUGATED [Concomitant]
  5. WARFARIN SODIUM [Concomitant]
  6. CLONIDINE [Concomitant]
  7. LISINOPRIL [Concomitant]
  8. POTASSIUM CHLORIDE [Concomitant]
  9. FUROSEMIDE [Concomitant]
  10. ALBUTEROL [Concomitant]
  11. CITALOPRAM HYDROBROMIDE [Concomitant]
  12. TRAMADOL HCL [Concomitant]

REACTIONS (5)
  - BALANCE DISORDER [None]
  - FATIGUE [None]
  - LYMPHADENOPATHY [None]
  - PARAESTHESIA [None]
  - PHARYNGOLARYNGEAL PAIN [None]
